FAERS Safety Report 21541054 (Version 1)
Quarter: 2022Q4

REPORT INFORMATION
  Report Type: Spontaneous
  Country: IN (occurrence: IN)
  Receive Date: 20221102
  Receipt Date: 20221102
  Transmission Date: 20230113
  Serious: Yes (Other)
  Sender: FDA-Public Use
  Company Number: IN-MLMSERVICE-20221018-3865381-1

PATIENT
  Age: 2 Year
  Sex: Female

DRUGS (2)
  1. DOXORUBICIN HYDROCHLORIDE [Suspect]
     Active Substance: DOXORUBICIN HYDROCHLORIDE
     Indication: Hepatoblastoma
     Dosage: SIX CYCLES
  2. CISPLATIN [Suspect]
     Active Substance: CISPLATIN
     Indication: Hepatoblastoma
     Dosage: SIX CYCLES

REACTIONS (5)
  - Hepatic necrosis [Unknown]
  - Hepatitis [Unknown]
  - Hepatocellular foamy cell syndrome [Unknown]
  - Fibrosis [Unknown]
  - Off label use [Unknown]
